FAERS Safety Report 4286045-3 (Version None)
Quarter: 2004Q1

REPORT INFORMATION
  Report Type: 
  Country: None (occurrence: None)
  Receive Date: 20040205
  Receipt Date: 20031216
  Transmission Date: 20041129
  Serious: Yes (Other)
  Sender: FDA-Public Use
  Company Number: PHEH2003US11505

PATIENT
  Age: 34 Year
  Sex: Female
  Weight: 113 kg

DRUGS (14)
  1. ZELNORM [Suspect]
     Indication: IRRITABLE BOWEL SYNDROME
     Dosage: 6 MG, BID
     Route: 048
     Dates: start: 20021216, end: 20031212
  2. SYNTHROID [Concomitant]
  3. PRILOSEC [Concomitant]
  4. TOPAMAX [Concomitant]
  5. ZOFRAN [Concomitant]
  6. NASACORT [Concomitant]
  7. SPIRONOLACTONE [Concomitant]
  8. AXERT [Concomitant]
  9. LORTAB [Concomitant]
  10. ALLEGRA [Concomitant]
  11. ZEBETA [Concomitant]
  12. CELEBREX [Concomitant]
  13. AMBIEN [Concomitant]
  14. GLUCOPHAGE [Concomitant]

REACTIONS (5)
  - CONSTIPATION [None]
  - DIARRHOEA [None]
  - SELF-MEDICATION [None]
  - URINARY TRACT INFECTION [None]
  - WEIGHT DECREASED [None]
